FAERS Safety Report 6105259-0 (Version None)
Quarter: 2009Q1

REPORT INFORMATION
  Report Type: 
  Country: None (occurrence: None)
  Receive Date: 20090306
  Receipt Date: 20090224
  Transmission Date: 20090719
  Serious: Yes (Hospitalization)
  Sender: FDA-Public Use
  Company Number: PHBS2009CN00868

PATIENT
  Age: 50 Year
  Sex: Female

DRUGS (1)
  1. CYCLOSPORINE [Suspect]
     Indication: APLASTIC ANAEMIA
     Dosage: ^150 MG QD AND 175 MG QD IN TURN EVERYDAY^
     Route: 048

REACTIONS (11)
  - CHEST DISCOMFORT [None]
  - DEMYELINATING POLYNEUROPATHY [None]
  - ELECTROMYOGRAM ABNORMAL [None]
  - GASTROINTESTINAL MOTILITY DISORDER [None]
  - HYPOAESTHESIA [None]
  - HYPOAESTHESIA FACIAL [None]
  - HYPOREFLEXIA [None]
  - MICTURITION DISORDER [None]
  - MOVEMENT DISORDER [None]
  - PERIPHERAL COLDNESS [None]
  - TREMOR [None]
